FAERS Safety Report 6904954-0 (Version None)
Quarter: 2010Q3

REPORT INFORMATION
  Report Type: 
  Country: None (occurrence: None)
  Receive Date: 20100804
  Receipt Date: 20090812
  Transmission Date: 20110219
  Serious: No
  Sender: FDA-Public Use
  Company Number: US-PFIZER INC-2009182275

PATIENT
  Sex: Female

DRUGS (2)
  1. LYRICA [Suspect]
     Indication: BACK DISORDER
     Dosage: 75 MG, 2X/DAY
     Route: 048
     Dates: start: 20090121, end: 20090126
  2. ARANESP [Concomitant]
     Dosage: UNK

REACTIONS (6)
  - DISORIENTATION [None]
  - DIZZINESS [None]
  - GAIT DISTURBANCE [None]
  - HEAD DISCOMFORT [None]
  - MENTAL IMPAIRMENT [None]
  - THINKING ABNORMAL [None]
